FAERS Safety Report 17954969 (Version 1)
Quarter: 2020Q2

REPORT INFORMATION
  Report Type: Spontaneous
  Country: CA (occurrence: CA)
  Receive Date: 20200629
  Receipt Date: 20200629
  Transmission Date: 20200714
  Serious: Yes (Other)
  Sender: FDA-Public Use
  Company Number: CA-AUROBINDO-AUR-APL-2020-027331

PATIENT
  Age: 56 Year
  Sex: Female

DRUGS (13)
  1. MIRTAZAPINE TABLET [Suspect]
     Active Substance: MIRTAZAPINE
     Indication: MIGRAINE
     Dosage: UNK
     Route: 065
  2. PERINDOPRIL TABLETS [Suspect]
     Active Substance: PERINDOPRIL
     Indication: NEPHROPATHY TOXIC
     Dosage: UNK
     Route: 065
  3. TOPIRAMATE. [Suspect]
     Active Substance: TOPIRAMATE
     Indication: MIGRAINE
     Dosage: UNK
     Route: 065
  4. AMITRIPTYLINE [Suspect]
     Active Substance: AMITRIPTYLINE
     Indication: MIGRAINE
     Dosage: UNK
     Route: 065
  5. PROPRANOLOL [Suspect]
     Active Substance: PROPRANOLOL HYDROCHLORIDE
     Indication: PRODUCT USED FOR UNKNOWN INDICATION
     Dosage: UNK
     Route: 065
  6. DOMPERIDONE [Concomitant]
     Active Substance: DOMPERIDONE
     Indication: MIGRAINE
     Dosage: UNK
     Route: 065
  7. CANDESARTAN TABLETS [Suspect]
     Active Substance: CANDESARTAN
     Indication: MIGRAINE
     Dosage: UNK
     Route: 065
  8. ONDANSETRON [Suspect]
     Active Substance: ONDANSETRON
     Indication: MIGRAINE
     Dosage: UNK
     Route: 065
  9. DULOXETINE. [Suspect]
     Active Substance: DULOXETINE
     Indication: MIGRAINE
     Dosage: UNK
     Route: 065
  10. GABAPENTIN. [Suspect]
     Active Substance: GABAPENTIN
     Indication: MIGRAINE
     Dosage: UNK
     Route: 065
  11. PERINDOPRIL TABLETS [Suspect]
     Active Substance: PERINDOPRIL
     Indication: TOXICITY TO VARIOUS AGENTS
  12. OXYCODONE [Suspect]
     Active Substance: OXYCODONE
     Indication: MIGRAINE
     Dosage: UNK
     Route: 065
  13. PERINDOPRIL TABLETS [Suspect]
     Active Substance: PERINDOPRIL
     Indication: HYPERTENSION

REACTIONS (13)
  - Electrocardiogram QT prolonged [Unknown]
  - Contraindicated product administered [Unknown]
  - Serotonin syndrome [Unknown]
  - Fall [Unknown]
  - Drug intolerance [Unknown]
  - Toxicity to various agents [Unknown]
  - Drug ineffective for unapproved indication [Unknown]
  - Hypertension [Unknown]
  - Drug interaction [Unknown]
  - Nephropathy toxic [Unknown]
  - Depressed level of consciousness [Unknown]
  - Mental disorder [Unknown]
  - Drug ineffective [Unknown]
